FAERS Safety Report 4872114-3 (Version None)
Quarter: 2005Q4

REPORT INFORMATION
  Report Type: 
  Country: None (occurrence: None)
  Receive Date: 20051230
  Receipt Date: 20051216
  Transmission Date: 20060501
  Serious: Yes (Hospitalization)
  Sender: FDA-Public Use
  Company Number: JP200512003261

PATIENT
  Age: 65 Year
  Sex: Female

DRUGS (3)
  1. RALOXIFENE HCL [Suspect]
     Indication: OSTEOPOROSIS POSTMENOPAUSAL
     Dosage: 60 MG, DAILY (1/D), ORAL
     Route: 048
     Dates: start: 20041111, end: 20041227
  2. OSTELUC (ETODOLAC) [Concomitant]
  3. ELCITONIN (ELCATONIN) [Concomitant]

REACTIONS (1)
  - MELAENA [None]
